FAERS Safety Report 20737208 (Version 2)
Quarter: 2022Q2

REPORT INFORMATION
  Report Type: Spontaneous
  Country: US (occurrence: US)
  Receive Date: 20220421
  Receipt Date: 20220503
  Transmission Date: 20220720
  Serious: Yes (Other)
  Sender: FDA-Public Use
  Company Number: US-TEVA-2022-US-2028221

PATIENT
  Age: 40 Year
  Sex: Female

DRUGS (3)
  1. MOXIFLOXACIN [Suspect]
     Active Substance: MOXIFLOXACIN
     Indication: Neurotrophic keratopathy
     Route: 061
  2. CENEGERMIN-BKBJ [Suspect]
     Active Substance: CENEGERMIN-BKBJ
     Indication: Neurotrophic keratopathy
     Dosage: 6 GTT DAILY; 6 TIMES/DAY FOR 8 WEEKS
     Route: 061
  3. GANCICLOVIR [Suspect]
     Active Substance: GANCICLOVIR
     Indication: Neurotrophic keratopathy
     Dosage: OPHTHALMIC GEL
     Route: 061

REACTIONS (3)
  - Calcinosis [Recovered/Resolved]
  - Keratopathy [Recovered/Resolved]
  - Corneal opacity [Recovered/Resolved]
